FAERS Safety Report 4575871-9 (Version None)
Quarter: 2005Q1

REPORT INFORMATION
  Report Type: 
  Country: None (occurrence: None)
  Receive Date: 20050201
  Receipt Date: 20050201
  Transmission Date: 20050727
  Serious: Yes (Other)
  Sender: FDA-Public Use
  Company Number: None

PATIENT
  Age: 68 Year
  Sex: Male

DRUGS (2)
  1. LEVOBUNOLOL 0.5% OPTH SOLUN 15ML [Suspect]
     Indication: GLAUCOMA
     Dosage: ONE DROP IN THE LEFT EYE TWICE DAILY
     Route: 047
     Dates: start: 19950101, end: 20050130
  2. PRAVACHOL [Concomitant]

REACTIONS (2)
  - DRUG INEFFECTIVE [None]
  - PHARMACEUTICAL PRODUCT COMPLAINT [None]
